FAERS Safety Report 18250998 (Version 1)
Quarter: 2020Q3

REPORT INFORMATION
  Report Type: Spontaneous
  Country: SE (occurrence: SE)
  Receive Date: 20200910
  Receipt Date: 20200910
  Transmission Date: 20201103
  Serious: Yes (Other)
  Sender: FDA-Public Use
  Company Number: SE-MDD US OPERATIONS-MDD202009-001772

PATIENT
  Age: 74 Year
  Sex: Female

DRUGS (8)
  1. XADAGO [Suspect]
     Active Substance: SAFINAMIDE MESYLATE
     Indication: PARKINSON^S DISEASE
     Route: 048
     Dates: start: 20200219, end: 20200507
  2. MADOPARK QUICK MITE [Concomitant]
     Active Substance: BENSERAZIDE HYDROCHLORIDE\LEVODOPA
  3. BEHEPAN [Concomitant]
     Dosage: NOT PROVIDED
  4. DIVISUN [Concomitant]
     Active Substance: CHOLECALCIFEROL
     Dosage: NOT PROVIDED
  5. ROPINIROLE. [Concomitant]
     Active Substance: ROPINIROLE
     Dosage: NOT PROVIDED
  6. TOLTERODINE [Concomitant]
     Active Substance: TOLTERODINE
     Dosage: NOT PROVIDED
  7. MADOPARK [Concomitant]
     Active Substance: BENSERAZIDE HYDROCHLORIDE\LEVODOPA
     Dosage: NOT PROVIDED
  8. XARELTO [Concomitant]
     Active Substance: RIVAROXABAN
     Dosage: NOT PROVIDED

REACTIONS (2)
  - Photophobia [Recovered/Resolved]
  - Vision blurred [Recovered/Resolved]

NARRATIVE: CASE EVENT DATE: 20200227
